FAERS Safety Report 4876452-X (Version None)
Quarter: 2005Q4

REPORT INFORMATION
  Report Type: 
  Country: None (occurrence: None)
  Receive Date: 20051206
  Receipt Date: 20051010
  Transmission Date: 20060501
  Serious: No
  Sender: FDA-Public Use
  Company Number: USA0510110498

PATIENT
  Age: 48 Year
  Sex: Female

DRUGS (4)
  1. CYMBALTA [Suspect]
     Indication: DYSTONIA
     Dosage: 30 MG
     Dates: start: 20050901, end: 20050901
  2. PARISTAN (PROFENAMINE HYDROCHLORIDE) [Concomitant]
  3. SOMA [Concomitant]
  4. ATIVAN [Concomitant]

REACTIONS (13)
  - ABDOMINAL PAIN [None]
  - AGITATION [None]
  - BACK PAIN [None]
  - CHEST PAIN [None]
  - CONSTIPATION [None]
  - DECREASED APPETITE [None]
  - DIZZINESS [None]
  - DRY MOUTH [None]
  - DYSPNOEA [None]
  - HEART RATE INCREASED [None]
  - NERVOUSNESS [None]
  - PAIN [None]
  - TENSION [None]
